FAERS Safety Report 7965634-6 (Version None)
Quarter: 2011Q4

REPORT INFORMATION
  Report Type: 
  Country: None (occurrence: None)
  Receive Date: 20111208
  Receipt Date: 20111201
  Transmission Date: 20120403
  Serious: Yes (Other)
  Sender: FDA-Public Use
  Company Number: PHHY2011CH106405

PATIENT
  Age: 7 Year
  Sex: Male

DRUGS (1)
  1. DIAZEPAM [Suspect]
     Indication: CONVULSION
     Dosage: 0.6 MG/KG, UNK

REACTIONS (4)
  - DYSPNOEA [None]
  - RESPIRATORY ARREST [None]
  - APNOEA [None]
  - RESPIRATORY ACIDOSIS [None]
